FAERS Safety Report 17588340 (Version 4)
Quarter: 2021Q4

REPORT INFORMATION
  Report Type: Spontaneous
  Country: NL (occurrence: NL)
  Receive Date: 20200327
  Receipt Date: 20211218
  Transmission Date: 20220303
  Serious: Yes (Other)
  Sender: FDA-Public Use
  Company Number: NL-DALECO-2020-NL-000016

PATIENT
  Age: 54 Year
  Sex: Female

DRUGS (11)
  1. SIMVASTATIN [Interacting]
     Active Substance: SIMVASTATIN
     Indication: Low density lipoprotein increased
     Dosage: 20 MILLIGRAM, ONCE A DAY
     Route: 065
  2. NORTRIPTYLINE [Suspect]
     Active Substance: NORTRIPTYLINE
     Indication: Product used for unknown indication
     Dosage: 60 MILLIGRAM
     Route: 065
     Dates: start: 2017
  3. TRANYLCYPROMINE SULFATE [Interacting]
     Active Substance: TRANYLCYPROMINE SULFATE
     Indication: Depression
     Dosage: 50 MILLIGRAM, EVERY OTHER DAY
     Route: 065
     Dates: start: 201912
  4. TRANYLCYPROMINE SULFATE [Interacting]
     Active Substance: TRANYLCYPROMINE SULFATE
     Dosage: 30 MILLIGRAM
     Route: 065
     Dates: start: 202002
  5. TRANYLCYPROMINE SULFATE [Interacting]
     Active Substance: TRANYLCYPROMINE SULFATE
     Dosage: 30 MILLIGRAM, 3 DAYS
     Route: 065
     Dates: start: 202002
  6. TRANYLCYPROMINE SULFATE [Interacting]
     Active Substance: TRANYLCYPROMINE SULFATE
     Dosage: 90 MILLIGRAM, ONCE A DAY
     Route: 065
     Dates: start: 202002
  7. TRANYLCYPROMINE SULFATE [Interacting]
     Active Substance: TRANYLCYPROMINE SULFATE
     Dosage: 90 MILLIGRAM, ONCE A DAY
     Route: 065
     Dates: start: 20200215
  8. TRANYLCYPROMINE SULFATE [Interacting]
     Active Substance: TRANYLCYPROMINE SULFATE
     Dosage: 90 MILLIGRAM, ONCE A DAY
     Route: 065
     Dates: start: 202002
  9. OMEPRAZOLE [Concomitant]
     Active Substance: OMEPRAZOLE
     Indication: Product used for unknown indication
     Dosage: 20 MILLIGRAM, EVERY OTHER DAY
     Route: 065
  10. OMEPRAZOLE [Concomitant]
     Active Substance: OMEPRAZOLE
     Dosage: 20 MILLIGRAM, TWO TIMES A DAY
     Route: 065
  11. LITHIUM [Concomitant]
     Active Substance: LITHIUM
     Indication: Product used for unknown indication
     Dosage: 600 MILLIGRAM
     Route: 065
     Dates: start: 2017

REACTIONS (15)
  - Hypertensive crisis [Recovered/Resolved]
  - Hypotension [Recovered/Resolved]
  - Bradycardia [Recovered/Resolved]
  - Chest discomfort [Recovered/Resolved]
  - Hypertension [Recovered/Resolved]
  - Insomnia [Recovered/Resolved]
  - Restless legs syndrome [Recovered/Resolved]
  - Hyperhidrosis [Recovered/Resolved]
  - Potentiating drug interaction [Not Recovered/Not Resolved]
  - Drug dose titration not performed [Not Recovered/Not Resolved]
  - Therapeutic product effect decreased [Not Recovered/Not Resolved]
  - Drug ineffective [Not Recovered/Not Resolved]
  - Overdose [Not Recovered/Not Resolved]
  - Contraindicated product administered [Not Recovered/Not Resolved]
  - Depression [Not Recovered/Not Resolved]

NARRATIVE: CASE EVENT DATE: 20200129
